FAERS Safety Report 7157788-9 (Version None)
Quarter: 2010Q4

REPORT INFORMATION
  Report Type: 
  Country: None (occurrence: None)
  Receive Date: 20101214
  Receipt Date: 20100421
  Transmission Date: 20110411
  Serious: No
  Sender: FDA-Public Use
  Company Number: US-ASTRAZENECA-2010SE06030

PATIENT
  Age: 83 Year
  Sex: Female
  Weight: 50.8 kg

DRUGS (32)
  1. CRESTOR [Suspect]
     Route: 048
  2. NEXIUM [Concomitant]
     Dosage: ONE DAILY AS NEEDED
     Route: 048
  3. ATENOLOL [Concomitant]
  4. CELEBREX [Concomitant]
  5. IBUPROFEN [Concomitant]
  6. LUNESTA [Concomitant]
  7. NITROGLYCERIN [Concomitant]
     Route: 060
  8. PLAVIX [Concomitant]
  9. REMERON [Concomitant]
  10. STARLIX [Concomitant]
  11. TAGAMET [Concomitant]
  12. TYLOX [Concomitant]
     Dosage: 5-500MG EVERY SIX HOURS AS NEEDED
  13. DARVOCET-N 100 [Concomitant]
     Dosage: 100 TABS
  14. MULTI-VITAMINS [Concomitant]
  15. NEURONTIN [Concomitant]
  16. REGLAN [Concomitant]
  17. RELAFEN [Concomitant]
  18. DURAHIST [Concomitant]
     Dosage: TB 12
  19. COQ 10 [Concomitant]
  20. ENALAPRIL MALEATE [Concomitant]
  21. RANEXA [Concomitant]
  22. FIBER [Concomitant]
     Dosage: CAPS
  23. VIOXX [Concomitant]
  24. SYNTHROID [Concomitant]
  25. FLEXERIL [Concomitant]
  26. SIMETHICONE [Concomitant]
     Dosage: 80 80MGS CHEW CHEW AND SWALLOW ONE TABLET FOUR TIMES DAILY AFTER MEALS AND AT BEDTIME
  27. ALPRAZOLAM [Concomitant]
     Dosage: HALF TABLET QID
  28. TRIAZOLAM [Concomitant]
  29. FLUCONAZOLE [Concomitant]
  30. VASOTEC [Concomitant]
     Dosage: 0.5 TABLET DAILY
  31. AK-POLY-BAC [Concomitant]
     Dosage: 500-10000 UNIT PER GMS APPLY HALF INCH RIBBON INTO AFFECTED EYES AT BEDTIME
  32. PREDNISOLONE ACETATE [Concomitant]
     Dosage: ONE GTT OD AS DIRECTED

REACTIONS (4)
  - FALL [None]
  - JOINT SPRAIN [None]
  - NEUROPATHY PERIPHERAL [None]
  - RADIUS FRACTURE [None]
